FAERS Safety Report 4705940-1 (Version None)
Quarter: 2005Q2

REPORT INFORMATION
  Report Type: 
  Country: None (occurrence: None)
  Receive Date: 20050628
  Receipt Date: 20040504
  Transmission Date: 20051028
  Serious: Yes (Disabling)
  Sender: FDA-Public Use
  Company Number: VISP-PR-0405S-0179

PATIENT
  Age: 52 Year
  Sex: Female

DRUGS (9)
  1. VISIPAQUE [Suspect]
     Indication: MYOCARDIAL INFARCTION
     Dosage: 90 ML, SINGLE DOSE, I.A.
     Route: 013
     Dates: start: 20040322, end: 20040322
  2. UBIDECARENONE (COENZYME Q10) [Concomitant]
  3. TOCOPHEROL (VITAMIN E) [Concomitant]
  4. DIGOXIN (LENOXIN) [Concomitant]
  5. LEVOTHYROXINE SODIUM (LEVOXYL) [Concomitant]
  6. CALCIUM GLUCONATE [Concomitant]
  7. ACETYLSALICYLIC ACID (BABY ASPIRIN) [Concomitant]
  8. PREDNISONE TAB [Concomitant]
  9. SODIUM CHLORIDE (NORMAL SALINE) [Concomitant]

REACTIONS (9)
  - BLINDNESS TRANSIENT [None]
  - BLOOD PRESSURE DECREASED [None]
  - CATHETER SITE HAEMORRHAGE [None]
  - CATHETER SITE RELATED REACTION [None]
  - CHEST PAIN [None]
  - CONSTIPATION [None]
  - DYSPEPSIA [None]
  - POST PROCEDURAL HAEMATOMA [None]
  - VENTRICULAR TACHYCARDIA [None]
